FAERS Safety Report 4475503-4 (Version None)
Quarter: 2004Q4

REPORT INFORMATION
  Report Type: 
  Country: None (occurrence: None)
  Receive Date: 20041014
  Receipt Date: 20041014
  Transmission Date: 20050328
  Serious: Yes (Life-Threatening, Hospitalization, Disabling)
  Sender: FDA-Public Use
  Company Number: None

PATIENT
  Sex: Male
  Weight: 116.1208 kg

DRUGS (2)
  1. PRAZOSIN 2 MG PER DAY [Suspect]
     Indication: BENIGN PROSTATIC HYPERPLASIA
     Dosage: 1 PER DAY ORAL
     Route: 048
  2. TEROZASIN 2 MG PER DAY [Suspect]
     Indication: BENIGN PROSTATIC HYPERPLASIA
     Dosage: 1 PER DAY ORAL
     Route: 048

REACTIONS (4)
  - ANGINA PECTORIS [None]
  - CARDIAC DISORDER [None]
  - CHEST PAIN [None]
  - VASOCONSTRICTION [None]
